APPROVED DRUG PRODUCT: VERAPAMIL HYDROCHLORIDE
Active Ingredient: VERAPAMIL HYDROCHLORIDE
Strength: 2.5MG/ML
Dosage Form/Route: INJECTABLE;INJECTION
Application: A214653 | Product #001 | TE Code: AP
Applicant: MANKIND PHARMA LTD
Approved: Jun 15, 2022 | RLD: No | RS: No | Type: RX